FAERS Safety Report 4617158-1 (Version None)
Quarter: 2005Q1

REPORT INFORMATION
  Report Type: 
  Country: None (occurrence: None)
  Receive Date: 20050323
  Receipt Date: 20050315
  Transmission Date: 20050727
  Serious: Yes (Hospitalization, Other)
  Sender: FDA-Public Use
  Company Number: US-GLAXOSMITHKLINE-A0549846A

PATIENT
  Sex: Female

DRUGS (3)
  1. LAMICTAL [Suspect]
     Indication: BIPOLAR DISORDER
     Route: 048
     Dates: end: 20050308
  2. ABILIFY [Concomitant]
  3. TRAZODONE HCL [Concomitant]

REACTIONS (3)
  - INCOHERENT [None]
  - MANIA [None]
  - SUICIDAL IDEATION [None]
